FAERS Safety Report 4370209-4 (Version None)
Quarter: 2004Q2

REPORT INFORMATION
  Report Type: 
  Country: None (occurrence: None)
  Receive Date: 20040603
  Receipt Date: 20040414
  Transmission Date: 20050107
  Serious: No
  Sender: FDA-Public Use
  Company Number: US-BRISTOL-MYERS SQUIBB COMPANY-12560249

PATIENT
  Age: 12 Year
  Sex: Female

DRUGS (5)
  1. ABILIFY [Suspect]
     Indication: MOOD SWINGS
     Dates: start: 20040407, end: 20040410
  2. ABILIFY [Suspect]
     Indication: BIPOLAR DISORDER
     Dates: start: 20040407, end: 20040410
  3. DEPAKOTE [Concomitant]
     Dosage: EVRY NIGHT:Q HS
     Dates: start: 20011001
  4. BUSPAR [Concomitant]
     Dates: start: 20001101
  5. ADDERALL 10 [Concomitant]
     Dates: start: 20020301

REACTIONS (5)
  - DROOLING [None]
  - EYE ROLLING [None]
  - GAIT DISTURBANCE [None]
  - MOVEMENT DISORDER [None]
  - TORTICOLLIS [None]
